FAERS Safety Report 23959272 (Version 2)
Quarter: 2024Q3

REPORT INFORMATION
  Report Type: Report from Study
  Country: CA (occurrence: CA)
  Receive Date: 20240611
  Receipt Date: 20240702
  Transmission Date: 20241017
  Serious: Yes (Hospitalization, Other)
  Sender: ABBVIE
  Company Number: CA-ABBVIE-5786884

PATIENT
  Age: 66 Year
  Sex: Male

DRUGS (7)
  1. RINVOQ [Suspect]
     Active Substance: UPADACITINIB
     Indication: Dermatitis atopic
     Dosage: FORM STRENGTH: 30 MILLIGRAM
     Route: 048
     Dates: start: 20240528, end: 20240531
  2. RINVOQ [Suspect]
     Active Substance: UPADACITINIB
     Indication: Dermatitis atopic
  3. RINVOQ [Suspect]
     Active Substance: UPADACITINIB
     Indication: Dermatitis atopic
  4. CYCLOSPORINE [Concomitant]
     Active Substance: CYCLOSPORINE
     Indication: Product used for unknown indication
     Route: 048
  5. PREDNISONE [Concomitant]
     Active Substance: PREDNISONE
     Indication: Eczema
     Dosage: LAST ADMIN DATE IN 2024
     Route: 048
     Dates: start: 202405
  6. PREDNISONE [Concomitant]
     Active Substance: PREDNISONE
     Indication: Eczema
     Dosage: FIRST ADMIN DATE IN 2024
     Route: 048
  7. HYDROXYZINE [Concomitant]
     Active Substance: HYDROXYZINE HYDROCHLORIDE
     Indication: Product used for unknown indication
     Route: 048
     Dates: start: 202405

REACTIONS (13)
  - Sepsis [Unknown]
  - Dermatitis exfoliative generalised [Recovered/Resolved]
  - Skin weeping [Not Recovered/Not Resolved]
  - Rash erythematous [Not Recovered/Not Resolved]
  - Swelling face [Unknown]
  - Peripheral swelling [Not Recovered/Not Resolved]
  - Joint swelling [Not Recovered/Not Resolved]
  - Lip swelling [Not Recovered/Not Resolved]
  - Nausea [Unknown]
  - Hypoaesthesia oral [Not Recovered/Not Resolved]
  - Delirium [Unknown]
  - Rash [Recovering/Resolving]
  - Paraesthesia oral [Not Recovered/Not Resolved]

NARRATIVE: CASE EVENT DATE: 20240101
